FAERS Safety Report 10982063 (Version 14)
Quarter: 2018Q4

REPORT INFORMATION
  Report Type: Report from Study
  Country: CA (occurrence: CA)
  Receive Date: 20150403
  Receipt Date: 20181122
  Transmission Date: 20190204
  Serious: Yes (Other)
  Sender: FDA-Public Use
  Company Number: CA-ROCHE-1350337

PATIENT
  Age: 43 Year
  Sex: Female
  Weight: 60 kg

DRUGS (13)
  1. ZYTRAM XL [Concomitant]
     Active Substance: TRAMADOL HYDROCHLORIDE
     Indication: PAIN
     Route: 065
     Dates: start: 20140220
  2. KADCYLA [Suspect]
     Active Substance: ADO-TRASTUZUMAB EMTANSINE
     Indication: HER-2 POSITIVE BREAST CANCER
     Route: 042
     Dates: start: 20140227
  3. HERCEPTIN [Suspect]
     Active Substance: TRASTUZUMAB
     Indication: PRODUCT USED FOR UNKNOWN INDICATION
     Dosage: DATE OF MOST RECENT DOSE 30/JAN/2014.
     Route: 065
     Dates: start: 201201
  4. TAXOL [Concomitant]
     Active Substance: PACLITAXEL
     Indication: PRODUCT USED FOR UNKNOWN INDICATION
     Route: 065
     Dates: start: 201201, end: 2013
  5. ZYTRAM [Concomitant]
     Active Substance: TRAMADOL HYDROCHLORIDE
     Route: 065
     Dates: start: 20140220
  6. KADCYLA [Suspect]
     Active Substance: ADO-TRASTUZUMAB EMTANSINE
     Route: 042
     Dates: start: 20141218, end: 20150402
  7. XELODA [Suspect]
     Active Substance: CAPECITABINE
     Indication: PRODUCT USED FOR UNKNOWN INDICATION
     Route: 065
     Dates: start: 201310
  8. IVIG [Suspect]
     Active Substance: HUMAN IMMUNOGLOBULIN G
     Indication: PRODUCT USED FOR UNKNOWN INDICATION
     Route: 065
  9. BENADRYL [Concomitant]
     Active Substance: DIPHENHYDRAMINE HYDROCHLORIDE
     Route: 042
     Dates: start: 20140320, end: 20140813
  10. SOLU-MEDROL [Concomitant]
     Active Substance: METHYLPREDNISOLONE SODIUM SUCCINATE
     Route: 042
     Dates: start: 20140320, end: 20150402
  11. KADCYLA [Suspect]
     Active Substance: ADO-TRASTUZUMAB EMTANSINE
     Route: 042
     Dates: start: 20160317
  12. PERJETA [Suspect]
     Active Substance: PERTUZUMAB
     Indication: HER-2 POSITIVE BREAST CANCER
     Route: 042
     Dates: start: 20160115
  13. SOLU-MEDROL [Concomitant]
     Active Substance: METHYLPREDNISOLONE SODIUM SUCCINATE
     Route: 042
     Dates: start: 20140227, end: 20140320

REACTIONS (48)
  - Tumour marker increased [Not Recovered/Not Resolved]
  - Malaise [Unknown]
  - Gingival pain [Not Recovered/Not Resolved]
  - Dry mouth [Not Recovered/Not Resolved]
  - Epistaxis [Not Recovered/Not Resolved]
  - Hepatitis [Unknown]
  - Eczema [Not Recovered/Not Resolved]
  - Fatigue [Not Recovered/Not Resolved]
  - Paraesthesia [Not Recovered/Not Resolved]
  - Nausea [Not Recovered/Not Resolved]
  - Nasopharyngitis [Unknown]
  - Hyperaesthesia [Not Recovered/Not Resolved]
  - Breast disorder [Not Recovered/Not Resolved]
  - Blood pressure systolic decreased [Unknown]
  - Constipation [Not Recovered/Not Resolved]
  - Blood creatine phosphokinase increased [Not Recovered/Not Resolved]
  - Urinary tract infection [Recovered/Resolved]
  - Blood magnesium decreased [Unknown]
  - Blood test abnormal [Unknown]
  - Injection site haemorrhage [Unknown]
  - Sneezing [Unknown]
  - Weight decreased [Unknown]
  - Asthenia [Not Recovered/Not Resolved]
  - Muscular weakness [Unknown]
  - Nausea [Unknown]
  - Skin fissures [Unknown]
  - Headache [Unknown]
  - Epistaxis [Unknown]
  - Myalgia [Unknown]
  - Pain [Not Recovered/Not Resolved]
  - Malignant neoplasm progression [Unknown]
  - Hyperaesthesia [Unknown]
  - Pruritus [Unknown]
  - Dry skin [Unknown]
  - Seasonal allergy [Unknown]
  - Constipation [Recovered/Resolved]
  - Recurrent cancer [Unknown]
  - Hyperaesthesia [Not Recovered/Not Resolved]
  - Abdominal pain [Unknown]
  - Dry throat [Unknown]
  - Dysmenorrhoea [Unknown]
  - Weight decreased [Recovering/Resolving]
  - Weight increased [Unknown]
  - Palpitations [Unknown]
  - Headache [Unknown]
  - Blister [Unknown]
  - Hypotension [Unknown]
  - Vulvovaginal pain [Recovering/Resolving]

NARRATIVE: CASE EVENT DATE: 2013
